FAERS Safety Report 5690850-6 (Version None)
Quarter: 2008Q2

REPORT INFORMATION
  Report Type: 
  Country: None (occurrence: None)
  Receive Date: 20080401
  Receipt Date: 20080324
  Transmission Date: 20081010
  Serious: Yes (Disabling)
  Sender: FDA-Public Use
  Company Number: US-MERCK-0711USA00447

PATIENT
  Age: 59 Year
  Sex: Female
  Weight: 91 kg

DRUGS (12)
  1. JANUVIA [Concomitant]
     Route: 048
     Dates: start: 20070305, end: 20071008
  2. JANUVIA [Concomitant]
     Route: 048
     Dates: start: 20071101
  3. METFORMIN [Concomitant]
     Indication: DIABETES MELLITUS
     Route: 048
     Dates: start: 20070403, end: 20071008
  4. METFORMIN [Concomitant]
     Route: 048
     Dates: start: 20071101
  5. VYTORIN [Concomitant]
     Route: 048
     Dates: end: 20071009
  6. ACTOS [Concomitant]
     Route: 065
     Dates: start: 20071001, end: 20071101
  7. ZETIA [Concomitant]
     Route: 048
     Dates: start: 20071001
  8. LISINOPRIL [Concomitant]
     Route: 065
  9. [THERAPY UNSPECIFIED] [Concomitant]
     Route: 065
  10. [THERAPY UNSPECIFIED] [Concomitant]
     Route: 065
  11. JANUMET [Suspect]
     Indication: DIABETES MELLITUS
     Route: 048
     Dates: start: 20071009, end: 20071101
  12. JANUMET [Suspect]
     Indication: BLOOD GLUCOSE
     Route: 048
     Dates: start: 20071009, end: 20071101

REACTIONS (1)
  - DRUG ERUPTION [None]
